FAERS Safety Report 9134787 (Version 2)
Quarter: 2013Q1

REPORT INFORMATION
  Report Type: Spontaneous
  Country: FR (occurrence: FR)
  Receive Date: 20130304
  Receipt Date: 20130305
  Transmission Date: 20140127
  Serious: Yes (Hospitalization)
  Sender: FDA-Public Use
  Company Number: PHHY2013FR019742

PATIENT
  Age: 95 Year
  Sex: Female

DRUGS (8)
  1. TEGRETOL [Suspect]
     Dosage: 0.5 DF, QD
     Route: 048
     Dates: end: 20121212
  2. DAFALGAN [Suspect]
     Dosage: UNK UKN, UNK
     Route: 048
     Dates: end: 20121212
  3. INEXIUM//ESOMEPRAZOLE MAGNESIUM [Concomitant]
     Dosage: 10 MG, QD
     Route: 048
  4. BISOPROLOL [Concomitant]
     Dosage: 2.5 MG, QD
     Route: 048
  5. KARDEGIC [Concomitant]
     Dosage: 75 MG, QD
     Route: 048
  6. ZOLOFT [Concomitant]
     Dosage: 50 MG, QD
     Route: 048
  7. ATERAX [Concomitant]
     Dosage: 0.5 DF, QD
     Route: 048
  8. TRANSIPEG//MACROGOL [Concomitant]
     Dosage: 1 DF, QD
     Route: 048

REACTIONS (1)
  - Hepatocellular injury [Recovering/Resolving]
